FAERS Safety Report 7430909-6 (Version None)
Quarter: 2011Q2

REPORT INFORMATION
  Report Type: 
  Country: None (occurrence: None)
  Receive Date: 20110419
  Receipt Date: 20110419
  Transmission Date: 20111010
  Serious: Yes (Other)
  Sender: FDA-Public Use
  Company Number: None

PATIENT
  Age: 56 Year
  Sex: Female
  Weight: 52.6173 kg

DRUGS (1)
  1. METOCLOPRAMIDE HYDROCHLORIDE [Suspect]
     Indication: GASTROINTESTINAL DISORDER
     Dosage: TAKE 1 TABLET TWICE A DAY BEFORE MEALS

REACTIONS (4)
  - PARAESTHESIA [None]
  - MUSCLE TWITCHING [None]
  - TREMOR [None]
  - MUSCLE SPASMS [None]
